FAERS Safety Report 24041288 (Version 1)
Quarter: 2024Q3

REPORT INFORMATION
  Report Type: Spontaneous
  Country: US (occurrence: US)
  Receive Date: 20240702
  Receipt Date: 20240702
  Transmission Date: 20241017
  Serious: No
  Sender: PERRIGO
  Company Number: US-PERRIGO-22US017009

PATIENT
  Age: 68 Year
  Sex: Female

DRUGS (4)
  1. LORATADINE [Suspect]
     Active Substance: LORATADINE
     Indication: Hypersensitivity
     Dosage: HALF TABLET, TWICE
     Route: 048
     Dates: start: 20220307, end: 20220307
  2. LORATADINE [Suspect]
     Active Substance: LORATADINE
     Indication: Nasopharyngitis
  3. MECLIZINE [Suspect]
     Active Substance: MECLIZINE HYDROCHLORIDE
     Indication: Vertigo
     Dosage: 1 TABLET, SINGLE
     Route: 065
     Dates: start: 20220307, end: 20220307
  4. METOPROLOL [Concomitant]
     Active Substance: METOPROLOL
     Indication: Hypertension
     Dosage: UNK
     Route: 065

REACTIONS (4)
  - Swelling face [Recovered/Resolved]
  - Allergic reaction to excipient [Recovered/Resolved]
  - Underdose [Unknown]
  - Off label use [Unknown]

NARRATIVE: CASE EVENT DATE: 20220307
